FAERS Safety Report 7385096 (Version 4)
Quarter: 2014Q1

REPORT INFORMATION
  Report Type: Spontaneous
  Country: US (occurrence: US)
  Receive Date: 20100512
  Receipt Date: 20140128
  Transmission Date: 20141002
  Serious: Yes (Hospitalization)
  Sender: FDA-Public Use
  Company Number: US-JNJFOC-20100501797

PATIENT
  Sex: Male
  Weight: 64.86 kg

DRUGS (9)
  1. SANDOZ FENTANYL TRANSDERMAL SYSTEM [Suspect]
     Indication: PAIN
     Route: 062
     Dates: start: 201004
  2. SANDOZ FENTANYL TRANSDERMAL SYSTEM [Suspect]
     Indication: PAIN
     Dosage: NDC#: 0781-7114-55
     Route: 062
     Dates: end: 2006
  3. SANDOZ FENTANYL TRANSDERMAL SYSTEM [Suspect]
     Indication: PAIN
     Dosage: NDC#: 0781-7114-55
     Route: 062
     Dates: start: 2007, end: 201004
  4. DURAGESIC [Suspect]
     Indication: PAIN
     Route: 062
  5. DURAGESIC [Suspect]
     Indication: PAIN
     Dosage: 100UG/HR AND 75 UG/HR
     Route: 062
  6. DURAGESIC [Suspect]
     Indication: PAIN
     Route: 062
     Dates: start: 2000
  7. MYLAN FENTANYL TRANSDERMAL SYSTEM [Suspect]
     Indication: PAIN
     Route: 062
     Dates: end: 2006
  8. TRIAZOLAM [Concomitant]
     Indication: SLEEP DISORDER
     Route: 048
  9. PERCOCET [Concomitant]
     Indication: PAIN
     Dosage: DOSE: 10/325 MG
     Route: 048
     Dates: start: 2000

REACTIONS (14)
  - Fall [Recovered/Resolved]
  - Hernia [Recovered/Resolved]
  - Rotator cuff syndrome [Recovered/Resolved]
  - Drug ineffective [Not Recovered/Not Resolved]
  - Wrong technique in drug usage process [Recovered/Resolved]
  - Dizziness [Recovered/Resolved]
  - Nervousness [Not Recovered/Not Resolved]
  - Facial bones fracture [Recovered/Resolved]
  - Drug ineffective [Not Recovered/Not Resolved]
  - Nasal cyst [Unknown]
  - Product quality issue [Not Recovered/Not Resolved]
  - Hyperhidrosis [Not Recovered/Not Resolved]
  - Product quality issue [Unknown]
  - Product quality issue [Unknown]
